FAERS Safety Report 12209810 (Version 1)
Quarter: 2016Q1

REPORT INFORMATION
  Report Type: Spontaneous
  Country: US (occurrence: US)
  Receive Date: 20160325
  Receipt Date: 20160325
  Transmission Date: 20160526
  Serious: Yes (Hospitalization, Other)
  Sender: FDA-Public Use
  Company Number: US-BRISTOL-MYERS SQUIBB COMPANY-BMS-2016-021890

PATIENT
  Age: 74 Year
  Sex: Male
  Weight: 82.4 kg

DRUGS (1)
  1. COUMADIN [Suspect]
     Active Substance: WARFARIN SODIUM
     Indication: ATRIAL FIBRILLATION
     Dosage: UNK
     Route: 065
     Dates: start: 20160125

REACTIONS (6)
  - Lower gastrointestinal haemorrhage [Recovering/Resolving]
  - Arteriovenous malformation [Unknown]
  - Polyp [Unknown]
  - Transfusion [Unknown]
  - Diverticulum [Unknown]
  - Haemorrhoids [Unknown]

NARRATIVE: CASE EVENT DATE: 20160224
